FAERS Safety Report 6335883-1 (Version None)
Quarter: 2009Q3

REPORT INFORMATION
  Report Type: 
  Country: None (occurrence: None)
  Receive Date: 20090828
  Receipt Date: 20090819
  Transmission Date: 20100115
  Serious: Yes (Hospitalization, Other)
  Sender: FDA-Public Use
  Company Number: SPV1-2009-01571

PATIENT
  Sex: 0

DRUGS (2)
  1. ELAPRASE       (IDURSULFASE) SOLUTION FOR INFUSION [Suspect]
     Indication: MUCOPOLYSACCHARIDOSIS II
     Dosage: IV DRIP
     Route: 041
  2. ACETAMINOPHEN [Concomitant]

REACTIONS (1)
  - ANAPHYLACTOID REACTION [None]
